FAERS Safety Report 9373349 (Version 2)
Quarter: 2013Q3

REPORT INFORMATION
  Report Type: Spontaneous
  Country: PH (occurrence: PH)
  Receive Date: 20130627
  Receipt Date: 20130716
  Transmission Date: 20140515
  Serious: Yes (Other)
  Sender: FDA-Public Use
  Company Number: PH-GLAXOSMITHKLINE-B0903176A

PATIENT
  Age: 62 Year
  Sex: 0

DRUGS (1)
  1. VOTRIENT [Suspect]
     Indication: METASTATIC RENAL CELL CARCINOMA

REACTIONS (4)
  - Urinary tract infection [Unknown]
  - Blood glucose increased [Unknown]
  - Blood creatinine [Unknown]
  - Hypocalcaemia [Unknown]
